FAERS Safety Report 10298055 (Version 1)
Quarter: 2014Q3

REPORT INFORMATION
  Report Type: Spontaneous
  Country: US (occurrence: US)
  Receive Date: 20140711
  Receipt Date: 20140711
  Transmission Date: 20150326
  Serious: No
  Sender: FDA-Public Use
  Company Number: US-GLAXOSMITHKLINE-A1036148A

PATIENT
  Age: 67 Year
  Sex: Female

DRUGS (9)
  1. FLOVENT [Suspect]
     Active Substance: FLUTICASONE PROPIONATE
     Indication: ASTHMA
     Dosage: 2PUFF TWICE PER DAY
     Route: 055
     Dates: start: 20130415
  2. CLINDAMYCIN [Concomitant]
     Active Substance: CLINDAMYCIN\CLINDAMYCIN PHOSPHATE
  3. NITRATE [Concomitant]
  4. SINGULAIR [Concomitant]
     Active Substance: MONTELUKAST SODIUM
  5. PROAIR HFA [Concomitant]
     Active Substance: ALBUTEROL SULFATE
  6. UNKNOWN MEDICATION [Concomitant]
     Active Substance: UNSPECIFIED INGREDIENT
  7. ZOCOR [Concomitant]
     Active Substance: SIMVASTATIN
  8. TOPROL XL [Concomitant]
     Active Substance: METOPROLOL SUCCINATE
  9. VITAMIN D3 [Concomitant]
     Active Substance: CHOLECALCIFEROL

REACTIONS (2)
  - Upper limb fracture [Not Recovered/Not Resolved]
  - Breath odour [Unknown]

NARRATIVE: CASE EVENT DATE: 20130416
